FAERS Safety Report 19941562 (Version 1)
Quarter: 2021Q4

REPORT INFORMATION
  Report Type: Spontaneous
  Country: US (occurrence: US)
  Receive Date: 20211011
  Receipt Date: 20211011
  Transmission Date: 20220303
  Serious: No
  Sender: FDA-Public Use
  Company Number: US-JAZZ-2021-US-015206

PATIENT
  Age: 47 Year
  Sex: Female
  Weight: 68.03 kg

DRUGS (3)
  1. SUNOSI [Suspect]
     Active Substance: SOLRIAMFETOL
     Indication: Narcolepsy
     Dosage: 75 MILLIGRAM
     Route: 048
     Dates: start: 202107, end: 2021
  2. SUNOSI [Suspect]
     Active Substance: SOLRIAMFETOL
     Dosage: 105 MILLIGRAM
     Route: 048
     Dates: start: 2021, end: 20210810
  3. SUNOSI [Suspect]
     Active Substance: SOLRIAMFETOL
     Dosage: 150 MILLIGRAM, QD
     Route: 048
     Dates: start: 20210811

REACTIONS (2)
  - Irritability [Unknown]
  - Blood pressure increased [Not Recovered/Not Resolved]

NARRATIVE: CASE EVENT DATE: 20210701
